FAERS Safety Report 7776915-3 (Version None)
Quarter: 2011Q3

REPORT INFORMATION
  Report Type: 
  Country: None (occurrence: None)
  Receive Date: 20110926
  Receipt Date: 20110916
  Transmission Date: 20111222
  Serious: Yes (Hospitalization, Other)
  Sender: FDA-Public Use
  Company Number: US-ASTELLAS-2011US005943

PATIENT
  Sex: Male
  Weight: 100 kg

DRUGS (8)
  1. LISINOPRIL [Concomitant]
     Indication: HYPERTENSION
     Dosage: 20 MG, BID
     Route: 048
     Dates: start: 20110601
  2. MAGNESIUM OXIDE [Concomitant]
     Indication: HYPERTENSION
  3. ALLOPURINOL [Concomitant]
     Indication: DIABETIC NEUROPATHY
     Dosage: 40 MG, BID
     Route: 048
     Dates: start: 20090101
  4. PROGRAF [Suspect]
     Indication: RENAL TRANSPLANT
     Dosage: 15 MG, BID
     Route: 048
     Dates: start: 20061204, end: 20110908
  5. CLONIDINE [Concomitant]
     Indication: HYPERTENSION
     Dosage: 10.2 MG, TID
     Route: 048
     Dates: start: 20010101
  6. STOOL SOFTENER [Concomitant]
     Indication: FAECES HARD
     Dosage: 2 DF, BID
     Route: 048
     Dates: start: 20110501
  7. METOPROLOL [Concomitant]
     Indication: HYPERTENSION
     Dosage: 100 MG, BID
     Route: 048
     Dates: start: 20010101
  8. MAGNESIUM OXIDE [Concomitant]
     Indication: DIABETES MELLITUS
     Dosage: 100 MG, BID
     Route: 048
     Dates: start: 20060101

REACTIONS (4)
  - RENAL FAILURE [None]
  - DEVICE RELATED INFECTION [None]
  - PANCREATITIS [None]
  - HOSPITALISATION [None]
